FAERS Safety Report 5217618-9 (Version None)
Quarter: 2007Q1

REPORT INFORMATION
  Report Type: 
  Country: None (occurrence: None)
  Receive Date: 20070124
  Receipt Date: 20060523
  Transmission Date: 20070707
  Serious: No
  Sender: FDA-Public Use
  Company Number: US-GLAXOSMITHKLINE-A0606648A

PATIENT
  Age: 50 Year
  Sex: Female

DRUGS (3)
  1. PAXIL [Suspect]
     Dosage: 12.5MG PER DAY
     Route: 048
     Dates: start: 20060501
  2. AMBIEN [Concomitant]
  3. XANAX [Concomitant]

REACTIONS (4)
  - ANXIETY [None]
  - CONTUSION [None]
  - INSOMNIA [None]
  - SENSORY DISTURBANCE [None]
